FAERS Safety Report 11717274 (Version 2)
Quarter: 2016Q1

REPORT INFORMATION
  Report Type: Spontaneous
  Country: US (occurrence: US)
  Receive Date: 20151109
  Receipt Date: 20160316
  Transmission Date: 20160525
  Serious: No
  Sender: FDA-Public Use
  Company Number: US-009507513-1511USA004520

PATIENT
  Sex: Female

DRUGS (1)
  1. IMPLANON [Suspect]
     Active Substance: ETONOGESTREL
     Dosage: UNK
     Route: 059
     Dates: start: 201203

REACTIONS (3)
  - Device difficult to use [Unknown]
  - Drug dose omission [Unknown]
  - Complication associated with device [Unknown]

NARRATIVE: CASE EVENT DATE: 201203
